FAERS Safety Report 8570907-2 (Version None)
Quarter: 2012Q3

REPORT INFORMATION
  Report Type: 
  Country: None (occurrence: None)
  Receive Date: 20120806
  Receipt Date: 20120726
  Transmission Date: 20120928
  Serious: Yes (Hospitalization)
  Sender: FDA-Public Use
  Company Number: US-BIOGENIDEC-2012BI002265

PATIENT
  Age: 27 Year
  Sex: Female

DRUGS (4)
  1. TYSABRI [Suspect]
     Dates: start: 20120124
  2. TYSABRI [Suspect]
     Indication: MULTIPLE SCLEROSIS
     Route: 042
     Dates: start: 20110517, end: 20111101
  3. TYSABRI [Suspect]
     Indication: CROHN'S DISEASE
     Route: 042
     Dates: start: 20110517, end: 20111101
  4. TYSABRI [Suspect]
     Dates: start: 20120124

REACTIONS (5)
  - VAGINAL INFECTION [None]
  - URINARY TRACT INFECTION [None]
  - VIBRATORY SENSE INCREASED [None]
  - BRONCHITIS [None]
  - MULTIPLE SCLEROSIS RELAPSE [None]
